FAERS Safety Report 8190162-5 (Version None)
Quarter: 2012Q1

REPORT INFORMATION
  Report Type: 
  Country: None (occurrence: None)
  Receive Date: 20120221
  Receipt Date: 20120106
  Transmission Date: 20120608
  Serious: No
  Sender: FDA-Public Use
  Company Number: 1000026819

PATIENT
  Age: 67 Year
  Sex: Male

DRUGS (14)
  1. NEXIUM [Concomitant]
  2. BENTYL (DICYCLOMINE) (DICYCLOMINE) [Concomitant]
  3. OXYCONTIN (OXYCODONE HYDROCHLORIDE) (OXYCODONE HYDROCHLORIDE) [Concomitant]
  4. BUSPIRONE (BUSPIRONE) (BUSPIRONE) [Concomitant]
  5. LOTREL (AMLODIPINE BESYLATE, BENAZEPRIL HYDROCHLORIDE) (AMLODIPINE BES [Concomitant]
  6. ZANAFLEX (TIZANIDINE HYDROCHLORIDE) (TIZANIDINE HYDROCHLORIDE) [Concomitant]
  7. VIIBRYD [Suspect]
     Indication: DEPRESSION
     Dosage: 10 MG (10 MG, 1 IN 1 D), ORAL
     Route: 048
     Dates: start: 20111201, end: 20111201
  8. CLONIDINE [Concomitant]
  9. DILANTIN [Concomitant]
  10. TRAZODONE (TRAZODONE) (TRAZODONE) [Concomitant]
  11. OXAZEPAM (OXAZEPAM) (OXAZEPAM) [Concomitant]
  12. TALACEN (PENTAZOCINE, ACETAMINOPHEN) (PENTAZOCINE, ACETAMINOPHEN) [Concomitant]
  13. GABITRIL (TIAGABINE HYDROCHLORIDE) (TIAGABINE HYDROCHLORIDE) [Concomitant]
  14. ALLEGRA (FEXOFENADINE HYDROCHLORIDE) (FEXOFENADINE HYDROCHLORIDE) [Concomitant]

REACTIONS (6)
  - NIGHTMARE [None]
  - ANXIETY [None]
  - PANIC ATTACK [None]
  - MUSCLE TWITCHING [None]
  - INSOMNIA [None]
  - TREMOR [None]
